FAERS Safety Report 7585778-0 (Version None)
Quarter: 2011Q3

REPORT INFORMATION
  Report Type: 
  Country: None (occurrence: None)
  Receive Date: 20110701
  Receipt Date: 20110616
  Transmission Date: 20111222
  Serious: Yes (Hospitalization, Other)
  Sender: FDA-Public Use
  Company Number: US-BAYER-2011-003473

PATIENT
  Age: 29 Year
  Sex: Female
  Weight: 56.689 kg

DRUGS (4)
  1. YASMIN [Suspect]
     Indication: MENSTRUATION IRREGULAR
     Dosage: UNK
     Dates: start: 20050810, end: 20081101
  2. DIAMOX SRC [Concomitant]
  3. DROSPIRENONE AND ETHINYL ESTRADIOL [Suspect]
     Indication: PRODUCT USED FOR UNKNOWN INDICATION
     Dosage: UNK
     Dates: start: 20081101, end: 20090101
  4. TETRACYCLINE [Concomitant]
     Indication: SINUS DISORDER
     Dosage: UNK
     Dates: start: 20090101

REACTIONS (11)
  - PAPILLOEDEMA [None]
  - SUPERIOR SAGITTAL SINUS THROMBOSIS [None]
  - JUGULAR VEIN THROMBOSIS [None]
  - VISUAL IMPAIRMENT [None]
  - SINUS HEADACHE [None]
  - TRANSVERSE SINUS THROMBOSIS [None]
  - INTRACRANIAL VENOUS SINUS THROMBOSIS [None]
  - INTRACRANIAL PRESSURE INCREASED [None]
  - SCOTOMA [None]
  - MUSCULOSKELETAL STIFFNESS [None]
  - HEADACHE [None]
